FAERS Safety Report 9331627 (Version 3)
Quarter: 2013Q3

REPORT INFORMATION
  Report Type: Spontaneous
  Country: US (occurrence: US)
  Receive Date: 20130605
  Receipt Date: 20130725
  Transmission Date: 20140515
  Serious: Yes (Life-Threatening)
  Sender: FDA-Public Use
  Company Number: US-JNJFOC-20130522209

PATIENT
  Age: 74 Year
  Sex: Female

DRUGS (4)
  1. REMICADE [Suspect]
     Indication: RHEUMATOID ARTHRITIS
     Route: 042
     Dates: start: 20110107, end: 20120504
  2. ACTEMRA [Suspect]
     Indication: RHEUMATOID ARTHRITIS
     Dosage: 4 MG - 8MG/KG
     Route: 065
     Dates: start: 20120622, end: 20130322
  3. METHOTREXATE [Concomitant]
     Route: 065
     Dates: start: 20110614, end: 20130108
  4. PREDNISONE [Concomitant]
     Dosage: MULTIPLE DOSES
     Route: 065
     Dates: start: 20110104

REACTIONS (1)
  - Pancreatic carcinoma [Not Recovered/Not Resolved]
